FAERS Safety Report 17168053 (Version 1)
Quarter: 2019Q4

REPORT INFORMATION
  Report Type: Spontaneous
  Country: IT (occurrence: IT)
  Receive Date: 20191218
  Receipt Date: 20191218
  Transmission Date: 20200122
  Serious: Yes (Hospitalization)
  Sender: FDA-Public Use
  Company Number: IT-TEVA-2019-IT-1152094

PATIENT
  Age: 88 Year
  Sex: Female

DRUGS (10)
  1. CYMBALTA [Concomitant]
     Active Substance: DULOXETINE HYDROCHLORIDE
  2. TRITTICO [Concomitant]
     Active Substance: TRAZODONE HYDROCHLORIDE
  3. APROVEL [Concomitant]
     Active Substance: IRBESARTAN
  4. VALSARTAN. [Concomitant]
     Active Substance: VALSARTAN
  5. OLANZAPINE. [Concomitant]
     Active Substance: OLANZAPINE
  6. TICLOPIDINE [Suspect]
     Active Substance: TICLOPIDINE
     Indication: CARDIOVASCULAR EVENT PROPHYLAXIS
     Dosage: 2 DOSAGE FORMS PER DAY
     Route: 048
     Dates: start: 20190101, end: 20190804
  7. CALCITRIOL. [Concomitant]
     Active Substance: CALCITRIOL
  8. LASIX [Concomitant]
     Active Substance: FUROSEMIDE
  9. LOBIVON [Concomitant]
     Active Substance: NEBIVOLOL HYDROCHLORIDE
  10. SIMVASTATIN. [Concomitant]
     Active Substance: SIMVASTATIN

REACTIONS (2)
  - Melaena [Unknown]
  - Anaemia [Unknown]

NARRATIVE: CASE EVENT DATE: 20190804
